FAERS Safety Report 10187963 (Version 1)
Quarter: 2014Q2

REPORT INFORMATION
  Report Type: Spontaneous
  Country: US (occurrence: US)
  Receive Date: 20140522
  Receipt Date: 20140522
  Transmission Date: 20141212
  Serious: No
  Sender: FDA-Public Use
  Company Number: US-SANOFI-AVENTIS-2013SA094259

PATIENT
  Age: 59 Year
  Sex: Female

DRUGS (3)
  1. LANTUS SOLOSTAR [Suspect]
     Dosage: TAKEN FROM-2-3 YRS AGO, DOSE- 35-48 UNITS
     Route: 051
  2. LANTUS [Suspect]
     Dosage: TAKEN FROM- 20 YEARS
     Route: 051
  3. SOLOSTAR [Concomitant]
     Dosage: TAKEN FROM-2-3 YRS AGO

REACTIONS (3)
  - Gastric disorder [Unknown]
  - Decreased appetite [Unknown]
  - Diarrhoea [Unknown]
